FAERS Safety Report 5062690-2 (Version None)
Quarter: 2006Q3

REPORT INFORMATION
  Report Type: 
  Country: None (occurrence: None)
  Receive Date: 20060724
  Receipt Date: 20060724
  Transmission Date: 20061208
  Serious: Yes (Hospitalization)
  Sender: FDA-Public Use
  Company Number: None

PATIENT
  Sex: Female
  Weight: 53.1 kg

DRUGS (2)
  1. CYTARABINE [Suspect]
     Dosage: 100 MG/M2/DAY IV 1-7
     Dates: start: 20060207, end: 20060217
  2. DAUNORUBICIN HCL [Suspect]
     Dosage: 45 MG/M2/DAY IV DAYS 1-3
     Route: 042

REACTIONS (1)
  - DEATH [None]
